FAERS Safety Report 9277004 (Version 1)
Quarter: 2013Q2

REPORT INFORMATION
  Report Type: Spontaneous
  Country: US (occurrence: US)
  Receive Date: 20130507
  Receipt Date: 20130507
  Transmission Date: 20140414
  Serious: Yes (Life-Threatening)
  Sender: FDA-Public Use
  Company Number: CHPA2013US007773

PATIENT
  Age: 7 Year
  Sex: Male

DRUGS (3)
  1. TRIAMINIC THIN STRIPS ALLERGY [Suspect]
     Indication: ALLERGY TO ARTHROPOD STING
     Dosage: 3 DF, UNK
     Route: 048
  2. NASOMIXIN CM [Concomitant]
  3. BENADRYL//DIPHENHYDRAMINE HYDROCHLORIDE [Concomitant]
     Dosage: 3 TSP, UNK

REACTIONS (4)
  - Allergy to arthropod sting [Unknown]
  - Off label use [Unknown]
  - Incorrect dose administered [Unknown]
  - Therapeutic response unexpected [Unknown]
